FAERS Safety Report 5177801-8 (Version None)
Quarter: 2006Q4

REPORT INFORMATION
  Report Type: 
  Country: None (occurrence: None)
  Receive Date: 20061218
  Receipt Date: 20060725
  Transmission Date: 20070319
  Serious: No
  Sender: FDA-Public Use
  Company Number: US-AMGEN-KDL187786

PATIENT
  Sex: Female

DRUGS (3)
  1. ENBREL [Suspect]
     Indication: PSORIATIC ARTHROPATHY
     Route: 058
     Dates: start: 20040201
  2. ENBREL [Suspect]
     Indication: SYSTEMIC LUPUS ERYTHEMATOSUS
  3. IMURAN [Concomitant]
     Dates: start: 20000101

REACTIONS (6)
  - CATARACT [None]
  - DEHYDRATION [None]
  - GLAUCOMA [None]
  - MIGRAINE [None]
  - NAUSEA [None]
  - VOMITING [None]
